FAERS Safety Report 10281917 (Version 1)
Quarter: 2014Q3

REPORT INFORMATION
  Report Type: Report from Study
  Country: US (occurrence: US)
  Receive Date: 20140707
  Receipt Date: 20140707
  Transmission Date: 20150326
  Serious: Yes (Hospitalization)
  Sender: FDA-Public Use
  Company Number: US-ABBVIE-14P-163-1256329-00

PATIENT
  Age: 21 Year
  Sex: Female
  Weight: 66.28 kg

DRUGS (4)
  1. IMURAN [Concomitant]
     Active Substance: AZATHIOPRINE
     Indication: COLITIS ULCERATIVE
  2. NITROGLYCERIN. [Concomitant]
     Active Substance: NITROGLYCERIN
     Indication: ANAL FISSURE
  3. HUMIRA [Suspect]
     Active Substance: ADALIMUMAB
     Indication: COLITIS ULCERATIVE
     Route: 058
     Dates: start: 201405, end: 201405
  4. FERROUS GLUCONATE [Concomitant]
     Active Substance: FERROUS GLUCONATE
     Indication: VITAMIN SUPPLEMENTATION

REACTIONS (17)
  - Blood potassium decreased [Unknown]
  - Bacterial infection [Recovered/Resolved]
  - Infection [Recovered/Resolved]
  - Lymphocyte count decreased [Unknown]
  - Clostridium test positive [Recovered/Resolved]
  - Pyrexia [Recovered/Resolved]
  - Blood alkaline phosphatase increased [Recovered/Resolved]
  - Colitis ulcerative [Recovered/Resolved]
  - Tachycardia [Recovered/Resolved]
  - White blood cell count decreased [Unknown]
  - Rectal haemorrhage [Recovered/Resolved]
  - Hypotension [Recovered/Resolved]
  - Intestinal mucosal hypertrophy [Unknown]
  - Gastrointestinal mucosal disorder [Unknown]
  - Bacterial infection [Recovered/Resolved]
  - Leukocytosis [Recovered/Resolved]
  - Pyrexia [Recovered/Resolved]

NARRATIVE: CASE EVENT DATE: 201406
